FAERS Safety Report 10391149 (Version 1)
Quarter: 2014Q3

REPORT INFORMATION
  Report Type: Report from Study
  Country: TR (occurrence: TR)
  Receive Date: 20140818
  Receipt Date: 20140818
  Transmission Date: 20150326
  Serious: Yes (Hospitalization)
  Sender: FDA-Public Use
  Company Number: TR-US-EMD SERONO, INC.-7313762

PATIENT
  Age: 49 Year
  Sex: Female
  Weight: 78 kg

DRUGS (2)
  1. SUPRAFEN [Suspect]
     Active Substance: IBUPROFEN
     Indication: ANALGESIC THERAPY
  2. REBIF [Suspect]
     Active Substance: INTERFERON BETA-1A
     Indication: MULTIPLE SCLEROSIS

REACTIONS (1)
  - Joint deposit [Not Recovered/Not Resolved]

NARRATIVE: CASE EVENT DATE: 20140801
